FAERS Safety Report 24001421 (Version 1)
Quarter: 2024Q2

REPORT INFORMATION
  Report Type: Other
  Country: JP (occurrence: JP)
  Receive Date: 20240621
  Receipt Date: 20240621
  Transmission Date: 20240716
  Serious: Yes (Death, Hospitalization)
  Sender: FDA-Public Use
  Company Number: None

PATIENT
  Age: 91 Year
  Sex: Male
  Weight: 41 kg

DRUGS (15)
  1. OFIRMEV [Suspect]
     Active Substance: ACETAMINOPHEN
     Indication: Pain
     Route: 041
     Dates: start: 20231223, end: 20231223
  2. VANCOMYCIN HYDROCHLORIDE [Suspect]
     Active Substance: VANCOMYCIN HYDROCHLORIDE
     Indication: Staphylococcal infection
     Dosage: UNKNOWN
     Route: 041
     Dates: start: 20231202
  3. VANCOMYCIN HYDROCHLORIDE [Suspect]
     Active Substance: VANCOMYCIN HYDROCHLORIDE
     Dosage: UNKNOWN
     Route: 041
  4. VANCOMYCIN HYDROCHLORIDE [Suspect]
     Active Substance: VANCOMYCIN HYDROCHLORIDE
     Dosage: 400 MG/DOSE
     Route: 041
     Dates: start: 20231207, end: 20231212
  5. NALFURAFINE HYDROCHLORIDE OD [Concomitant]
     Dosage: UNKNOWN
  6. LINZESS [Concomitant]
     Active Substance: LINACLOTIDE
     Dosage: UNKNOWN
  7. LANSOPRAZOLE [Concomitant]
     Active Substance: LANSOPRAZOLE
     Dosage: UNKNOWN
  8. NICORANDIL [Concomitant]
     Active Substance: NICORANDIL
     Dosage: UNKNOWN
  9. METHYLCOBALAMIN [Concomitant]
     Active Substance: METHYLCOBALAMIN
     Dosage: UNKNOWN
  10. ACETAMINOPHEN\TRAMADOL HYDROCHLORIDE [Concomitant]
     Active Substance: ACETAMINOPHEN\TRAMADOL HYDROCHLORIDE
     Dosage: UNKNOWN
  11. NAUZELIN [Concomitant]
     Active Substance: DOMPERIDONE
     Dosage: UNKNOWN
  12. ISOSORBIDE DINITRATE [Concomitant]
     Active Substance: ISOSORBIDE DINITRATE
     Dosage: UNKNOWN
  13. WARFARIN POTASSIUM [Concomitant]
     Active Substance: WARFARIN POTASSIUM
     Dosage: UNKNOWN
  14. CLOPIDOGREL BISULFATE [Concomitant]
     Active Substance: CLOPIDOGREL BISULFATE
     Dosage: UNKNOWN
  15. HERBALS [Concomitant]
     Active Substance: HERBALS
     Dosage: UNKNOWN

REACTIONS (2)
  - Liver disorder [Fatal]
  - Neutrophil count decreased [Recovered/Resolved]

NARRATIVE: CASE EVENT DATE: 20231202
